FAERS Safety Report 7157549-0 (Version None)
Quarter: 2010Q4

REPORT INFORMATION
  Report Type: 
  Country: None (occurrence: None)
  Receive Date: 20101214
  Receipt Date: 20100222
  Transmission Date: 20110411
  Serious: No
  Sender: FDA-Public Use
  Company Number: US-ASTRAZENECA-2010SE07805

PATIENT
  Age: 64 Year
  Sex: Female
  Weight: 59.9 kg

DRUGS (2)
  1. CRESTOR [Suspect]
     Indication: HYPERCHOLESTEROLAEMIA
     Route: 048
     Dates: start: 20081001, end: 20091001
  2. CRESTOR [Suspect]
     Route: 048
     Dates: start: 20100208, end: 20100222

REACTIONS (3)
  - MUSCLE SPASMS [None]
  - MYALGIA [None]
  - PALPITATIONS [None]
